FAERS Safety Report 6800654-6 (Version None)
Quarter: 2010Q2

REPORT INFORMATION
  Report Type: 
  Country: None (occurrence: None)
  Receive Date: 20100625
  Receipt Date: 20100625
  Transmission Date: 20101027
  Serious: No
  Sender: FDA-Public Use
  Company Number: None

PATIENT

DRUGS (1)
  1. EQUATE ANTI-CAVITY FLUORIDE RINS N/A VI-JON [Suspect]

REACTIONS (2)
  - HYPOAESTHESIA ORAL [None]
  - PRODUCT LABEL ISSUE [None]
